FAERS Safety Report 6718430-1 (Version None)
Quarter: 2010Q2

REPORT INFORMATION
  Report Type: 
  Country: None (occurrence: None)
  Receive Date: 20100510
  Receipt Date: 20100428
  Transmission Date: 20101027
  Serious: Yes (Hospitalization)
  Sender: FDA-Public Use
  Company Number: US-WYE-H14926310

PATIENT
  Age: 54 Year
  Sex: Female
  Weight: 63.56 kg

DRUGS (1)
  1. EFFEXOR [Suspect]
     Indication: DEPRESSION
     Dosage: 225 OR 250 MG DAILY
     Route: 048
     Dates: start: 20100401

REACTIONS (9)
  - AMNESIA [None]
  - DEHYDRATION [None]
  - DELIRIUM [None]
  - HYPERTHYROIDISM [None]
  - INTENTIONAL OVERDOSE [None]
  - PSYCHOTIC DISORDER [None]
  - SUICIDE ATTEMPT [None]
  - TACHYCARDIA [None]
  - THYROTOXIC CRISIS [None]
